FAERS Safety Report 18713468 (Version 5)
Quarter: 2021Q2

REPORT INFORMATION
  Report Type: Report from Study
  Country: US (occurrence: US)
  Receive Date: 20210107
  Receipt Date: 20210415
  Transmission Date: 20210717
  Serious: No
  Sender: FDA-Public Use
  Company Number: NVSC2021US002826

PATIENT
  Sex: Female

DRUGS (1)
  1. COSENTYX [Suspect]
     Active Substance: SECUKINUMAB
     Indication: PRODUCT USED FOR UNKNOWN INDICATION
     Dosage: 300 MG, Q4W
     Route: 058

REACTIONS (6)
  - Pruritus [Unknown]
  - Diarrhoea [Unknown]
  - Injection site pain [Unknown]
  - Product dose omission issue [Unknown]
  - Skin fissures [Unknown]
  - Psoriasis [Unknown]
